FAERS Safety Report 20568611 (Version 1)
Quarter: 2022Q1

REPORT INFORMATION
  Report Type: Spontaneous
  Country: US (occurrence: US)
  Receive Date: 20220308
  Receipt Date: 20220308
  Transmission Date: 20220423
  Serious: No
  Sender: FDA-Public Use
  Company Number: US-SUNOVION-2022SUN000697

PATIENT
  Sex: Male

DRUGS (3)
  1. LATUDA [Suspect]
     Active Substance: LURASIDONE HYDROCHLORIDE
     Indication: Bipolar disorder
     Dosage: 6 DOSES OF LATUDA
     Route: 048
     Dates: start: 202105
  2. LATUDA [Suspect]
     Active Substance: LURASIDONE HYDROCHLORIDE
     Dosage: 6 DOSES OF LATUDA
     Route: 048
     Dates: start: 202111
  3. SAPHRIS [Suspect]
     Active Substance: ASENAPINE MALEATE
     Route: 065

REACTIONS (2)
  - Blood pressure decreased [Recovered/Resolved]
  - Therapeutic response unexpected [Unknown]
